FAERS Safety Report 9555331 (Version 1)
Quarter: 2013Q3

REPORT INFORMATION
  Report Type: Spontaneous
  Country: US (occurrence: None)
  Receive Date: 20130724
  Receipt Date: 20130724
  Transmission Date: 20140515
  Serious: Yes (Other)
  Sender: FDA-Public Use
  Company Number: PHEH2013US005465

PATIENT
  Age: 48 Year
  Sex: Female
  Weight: 86.2 kg

DRUGS (1)
  1. GILENYA [Suspect]
     Indication: MULTIPLE SCLEROSIS
     Route: 048
     Dates: start: 20130305

REACTIONS (3)
  - Erythema [None]
  - Visual impairment [None]
  - Dizziness [None]
